FAERS Safety Report 16031899 (Version 3)
Quarter: 2019Q1

REPORT INFORMATION
  Report Type: Report from Study
  Country: US (occurrence: US)
  Receive Date: 20190304
  Receipt Date: 20190311
  Transmission Date: 20190418
  Serious: Yes (Death, Hospitalization, Other)
  Sender: FDA-Public Use
  Company Number: PHHY2019US044159

PATIENT
  Age: 76 Year
  Sex: Female

DRUGS (2)
  1. PONATINIB [Suspect]
     Active Substance: PONATINIB
     Indication: LUNG NEOPLASM MALIGNANT
     Dosage: UNK
     Route: 065
     Dates: start: 20190208, end: 20190221
  2. TRAMETINIB [Suspect]
     Active Substance: TRAMETINIB
     Indication: LUNG NEOPLASM MALIGNANT
     Dosage: UNK
     Route: 065
     Dates: start: 20190208, end: 20190221

REACTIONS (10)
  - Atrial fibrillation [Fatal]
  - Streptococcal bacteraemia [Unknown]
  - Respiratory failure [Fatal]
  - Pleural effusion [Unknown]
  - Atelectasis [Unknown]
  - Influenza [Unknown]
  - Pyrexia [Recovered/Resolved]
  - Pulmonary congestion [Unknown]
  - Upper respiratory tract infection [Unknown]
  - Dyspnoea [Fatal]

NARRATIVE: CASE EVENT DATE: 20190221
